FAERS Safety Report 7032060-6 (Version None)
Quarter: 2010Q4

REPORT INFORMATION
  Report Type: 
  Country: None (occurrence: None)
  Receive Date: 20101007
  Receipt Date: 20100928
  Transmission Date: 20110411
  Serious: Yes (Other)
  Sender: FDA-Public Use
  Company Number: CA-ASTRAZENECA-2010SE45751

PATIENT
  Sex: Female

DRUGS (2)
  1. NEXIUM [Suspect]
     Indication: ABDOMINAL PAIN UPPER
     Route: 048
     Dates: start: 20080101, end: 20090601
  2. LEVOTHYROXINE SODIUM [Concomitant]
     Route: 065
     Dates: start: 20100801

REACTIONS (3)
  - BENIGN NEOPLASM OF THYROID GLAND [None]
  - OSTEOPOROSIS [None]
  - THROAT IRRITATION [None]
